FAERS Safety Report 7599549-2 (Version None)
Quarter: 2011Q3

REPORT INFORMATION
  Report Type: 
  Country: None (occurrence: None)
  Receive Date: 20110711
  Receipt Date: 20090616
  Transmission Date: 20111222
  Serious: No
  Sender: FDA-Public Use
  Company Number: 2008BI013146

PATIENT
  Age: 36 Year
  Sex: Male

DRUGS (2)
  1. TYSABRI [Suspect]
     Indication: MULTIPLE SCLEROSIS
     Route: 042
     Dates: start: 20080205, end: 20080402
  2. TYSABRI [Suspect]
     Route: 042
     Dates: start: 20090504

REACTIONS (3)
  - MIGRAINE [None]
  - HEADACHE [None]
  - GAIT DISTURBANCE [None]
